FAERS Safety Report 25679043 (Version 1)
Quarter: 2025Q3

REPORT INFORMATION
  Report Type: Spontaneous
  Country: EU (occurrence: EU)
  Receive Date: 20250814
  Receipt Date: 20250814
  Transmission Date: 20251020
  Serious: Yes (Life-Threatening)
  Sender: ELI LILLY AND COMPANY
  Company Number: None

PATIENT
  Sex: Male

DRUGS (1)
  1. HUMALOG [Suspect]
     Active Substance: INSULIN LISPRO
     Indication: Diabetes mellitus
     Route: 058
     Dates: start: 20250408

REACTIONS (2)
  - Hypoglycaemia [Unknown]
  - Product prescribing error [Recovered/Resolved]

NARRATIVE: CASE EVENT DATE: 20250408
